FAERS Safety Report 6992429-2 (Version None)
Quarter: 2010Q3

REPORT INFORMATION
  Report Type: 
  Country: None (occurrence: None)
  Receive Date: 20100917
  Receipt Date: 20100908
  Transmission Date: 20110219
  Serious: Yes (Other)
  Sender: FDA-Public Use
  Company Number: PHHY2010DE07729

PATIENT
  Sex: Male
  Weight: 104 kg

DRUGS (3)
  1. RASILEZ HCT [Suspect]
     Indication: HYPERTENSION
     Dosage: 1 DF/D
     Route: 048
     Dates: start: 20100107, end: 20100118
  2. METOPROLOL SUCCINATE [Concomitant]
     Indication: HYPERTENSION
     Dosage: 01 DF, BID
     Route: 048
     Dates: start: 20070101
  3. FUROSEMIDE [Concomitant]
     Indication: HYPERTENSION
     Dosage: UNK
     Route: 048
     Dates: start: 20100121

REACTIONS (1)
  - ATRIAL FIBRILLATION [None]
